FAERS Safety Report 4425143-8 (Version None)
Quarter: 2004Q3

REPORT INFORMATION
  Report Type: 
  Country: None (occurrence: None)
  Receive Date: 20040813
  Receipt Date: 20040804
  Transmission Date: 20050211
  Serious: Yes (Hospitalization)
  Sender: FDA-Public Use
  Company Number: AU-JNJFOC-20040801953

PATIENT
  Sex: Male
  Weight: 3.16 kg

DRUGS (11)
  1. RISPERDAL CONSTA [Suspect]
  2. VENTOLIN [Concomitant]
     Route: 015
  3. SERETIDE [Concomitant]
     Route: 015
  4. SERETIDE [Concomitant]
     Route: 015
  5. EFFEXOR [Concomitant]
     Dosage: 1 X 150 (UNITS UNSPECIFIED) ONCE DAILY
     Route: 015
  6. ACETAMINOPHEN W/ CODEINE [Concomitant]
     Route: 015
  7. ACETAMINOPHEN W/ CODEINE [Concomitant]
     Dosage: FREQUENCY: ^STAT^
     Route: 015
  8. PETHIDINE [Concomitant]
     Dosage: FREQUENCY: ^STAT^
     Route: 015
  9. MAXALON [Concomitant]
     Dosage: FREQUENCY: ^STAT^
     Route: 015
  10. BENZODIAZEPINE [Concomitant]
     Route: 015
  11. METHAMPHETAMINE HCL [Concomitant]
     Dosage: MOTHER USES METHAMPHETAMINE DAILY: 0.6-0.8G PER DAY.
     Route: 015

REACTIONS (6)
  - ARRHYTHMIA NEONATAL [None]
  - DRUG EXPOSURE DURING PREGNANCY [None]
  - FOETAL HEART RATE ABNORMAL [None]
  - NEONATAL DISORDER [None]
  - RESPIRATORY DISTRESS [None]
  - RESUSCITATION [None]
